FAERS Safety Report 13390885 (Version 1)
Quarter: 2017Q1

REPORT INFORMATION
  Report Type: Spontaneous
  Country: US (occurrence: US)
  Receive Date: 20170331
  Receipt Date: 20170331
  Transmission Date: 20170429
  Serious: Yes (Life-Threatening, Disabling)
  Sender: FDA-Public Use
  Company Number: None

PATIENT
  Age: 59 Year
  Sex: Female
  Weight: 69.75 kg

DRUGS (8)
  1. MAGNESIUM [Concomitant]
     Active Substance: MAGNESIUM
  2. VITAMIN D3 CALCIUM [Concomitant]
     Active Substance: CALCIUM\CHOLECALCIFEROL
  3. VITAMIN B12 [Concomitant]
     Active Substance: CYANOCOBALAMIN
  4. CIPRO [Suspect]
     Active Substance: CIPROFLOXACIN HYDROCHLORIDE
  5. COQ10 [Concomitant]
     Active Substance: UBIDECARENONE
  6. VITAMIN E [Concomitant]
     Active Substance: .ALPHA.-TOCOPHEROL
  7. DETOX TEA [Concomitant]
  8. MITOCHONDRIA DIET [Concomitant]

REACTIONS (19)
  - Pain in extremity [None]
  - Tremor [None]
  - Dry eye [None]
  - Neuropathy peripheral [None]
  - Anxiety [None]
  - Tendonitis [None]
  - Depressed level of consciousness [None]
  - Disturbance in attention [None]
  - Dry mouth [None]
  - Motor dysfunction [None]
  - Impaired self-care [None]
  - Nasal dryness [None]
  - Sensory disturbance [None]
  - Fatigue [None]
  - Musculoskeletal pain [None]
  - Impaired work ability [None]
  - Tendon pain [None]
  - Feeling abnormal [None]
  - Lacrimation increased [None]

NARRATIVE: CASE EVENT DATE: 20130104
